FAERS Safety Report 8143436-8 (Version None)
Quarter: 2012Q1

REPORT INFORMATION
  Report Type: 
  Country: None (occurrence: None)
  Receive Date: 20120215
  Receipt Date: 20120215
  Transmission Date: 20120608
  Serious: Yes (Hospitalization)
  Sender: FDA-Public Use
  Company Number: None

PATIENT
  Sex: Female

DRUGS (1)
  1. REVATIO [Suspect]
     Indication: PULMONARY ARTERIAL HYPERTENSION
     Dosage: 10 MG TID PO
     Route: 048
     Dates: start: 20120110

REACTIONS (3)
  - ROTAVIRUS INFECTION [None]
  - NERVOUS SYSTEM DISORDER [None]
  - DEHYDRATION [None]
